FAERS Safety Report 17755889 (Version 1)
Quarter: 2020Q2

REPORT INFORMATION
  Report Type: Spontaneous
  Country: US (occurrence: US)
  Receive Date: 20200506
  Receipt Date: 20200506
  Transmission Date: 20200714
  Serious: Yes (Other)
  Sender: FDA-Public Use
  Company Number: None

PATIENT
  Age: 43 Year
  Sex: Female

DRUGS (1)
  1. HUMIRA [Suspect]
     Active Substance: ADALIMUMAB
     Indication: RHEUMATOID ARTHRITIS
     Dosage: ?          OTHER STRENGTH:40MG/0.8 KIT;OTHER FREQUENCY:EVERY 14 DAYS;?
     Route: 058
     Dates: start: 20191127

REACTIONS (6)
  - Injection site pain [None]
  - Injection site swelling [None]
  - Dry skin [None]
  - Injection site erythema [None]
  - Injection site bruising [None]
  - Pruritus [None]
